FAERS Safety Report 19574431 (Version 2)
Quarter: 2022Q4

REPORT INFORMATION
  Report Type: Spontaneous
  Country: US (occurrence: US)
  Receive Date: 20210719
  Receipt Date: 20221121
  Transmission Date: 20230112
  Serious: Yes (Other)
  Sender: FDA-Public Use
  Company Number: US-SA-2021SA235672

PATIENT
  Age: 60 Year
  Sex: Male

DRUGS (1)
  1. ZANTAC [Suspect]
     Active Substance: RANITIDINE HYDROCHLORIDE
     Indication: Dyspepsia
     Dosage: 150 MG, FREQUENCY : OTHER
     Route: 065
     Dates: start: 198407, end: 202005

REACTIONS (5)
  - Colorectal cancer stage II [Recovering/Resolving]
  - Oesophageal carcinoma [Recovering/Resolving]
  - Gastrointestinal carcinoma [Recovering/Resolving]
  - Renal cancer stage II [Recovering/Resolving]
  - Gastric cancer stage II [Recovering/Resolving]

NARRATIVE: CASE EVENT DATE: 20120909
